FAERS Safety Report 16813151 (Version 1)
Quarter: 2019Q3

REPORT INFORMATION
  Report Type: Other
  Country: US (occurrence: US)
  Receive Date: 20190916
  Receipt Date: 20190916
  Transmission Date: 20191005
  Serious: No
  Sender: FDA-Public Use
  Company Number: US-LEADIANT BIOSCIENCES INC-2019STPI000156

PATIENT
  Age: 71 Year
  Sex: Female

DRUGS (8)
  1. LEUCOVORIN                         /00566701/ [Concomitant]
     Active Substance: LEUCOVORIN
  2. LEVETIRACETAM. [Concomitant]
     Active Substance: LEVETIRACETAM
  3. MATULANE [Suspect]
     Active Substance: PROCARBAZINE HYDROCHLORIDE
     Indication: DIFFUSE LARGE B-CELL LYMPHOMA
     Dosage: 150 MG, DAILY DAYS 2 TO 8
     Route: 048
     Dates: start: 20190321
  4. ALLOPURINOL. [Concomitant]
     Active Substance: ALLOPURINOL
  5. CARVEDILOL. [Concomitant]
     Active Substance: CARVEDILOL
  6. TIZANIDINE. [Concomitant]
     Active Substance: TIZANIDINE
  7. LISINOPRIL. [Concomitant]
     Active Substance: LISINOPRIL
  8. ASPIRIN. [Concomitant]
     Active Substance: ASPIRIN

REACTIONS (1)
  - Syncope [Not Recovered/Not Resolved]

NARRATIVE: CASE EVENT DATE: 20190327
